FAERS Safety Report 17576175 (Version 1)
Quarter: 2020Q1

REPORT INFORMATION
  Report Type: Spontaneous
  Country: US (occurrence: US)
  Receive Date: 20200324
  Receipt Date: 20200324
  Transmission Date: 20200409
  Serious: Yes (Hospitalization, Other)
  Sender: FDA-Public Use
  Company Number: None

PATIENT
  Age: 64 Year
  Sex: Male

DRUGS (1)
  1. J AND J BABY POWDER (ZINC OXIDE) [Suspect]
     Active Substance: ZINC OXIDE

REACTIONS (3)
  - Product contamination chemical [None]
  - Exposure to chemical pollution [None]
  - Mesothelioma malignant [None]

NARRATIVE: CASE EVENT DATE: 20190513
